FAERS Safety Report 5021795-2 (Version None)
Quarter: 2006Q2

REPORT INFORMATION
  Report Type: 
  Country: None (occurrence: None)
  Receive Date: 20060605
  Receipt Date: 20060517
  Transmission Date: 20061013
  Serious: Yes (Hospitalization)
  Sender: FDA-Public Use
  Company Number: US200605003830

PATIENT
  Age: 86 Year
  Sex: Female

DRUGS (1)
  1. ZYPREXA [Suspect]
     Dosage: 2.5 MG, 3/D, ORAL
     Route: 048
     Dates: start: 20060415, end: 20060101

REACTIONS (4)
  - COORDINATION ABNORMAL [None]
  - FEELING ABNORMAL [None]
  - INCOHERENT [None]
  - PNEUMONIA [None]
